FAERS Safety Report 20016795 (Version 1)
Quarter: 2021Q4

REPORT INFORMATION
  Report Type: Spontaneous
  Country: US (occurrence: None)
  Receive Date: 20211105
  Receipt Date: 20211105
  Transmission Date: 20220303
  Serious: Yes (Death)
  Sender: FDA-Public Use
  Company Number: None

PATIENT
  Age: 39 Year
  Sex: Male
  Weight: 94.5 kg

DRUGS (2)
  1. LYRICA [Suspect]
     Active Substance: PREGABALIN
     Indication: Back pain
     Dates: start: 20211004, end: 20211029
  2. LYRICA [Suspect]
     Active Substance: PREGABALIN
     Indication: Pain in extremity

REACTIONS (1)
  - Completed suicide [None]

NARRATIVE: CASE EVENT DATE: 20211029
